FAERS Safety Report 15579411 (Version 3)
Quarter: 2018Q4

REPORT INFORMATION
  Report Type: Spontaneous
  Country: CN (occurrence: CN)
  Receive Date: 20181102
  Receipt Date: 20181120
  Transmission Date: 20190205
  Serious: Yes (Hospitalization, Other)
  Sender: FDA-Public Use
  Company Number: CN-VIIV HEALTHCARE LIMITED-CN2018GSK197877

PATIENT
  Age: 58 Year
  Sex: Male
  Weight: 65 kg

DRUGS (3)
  1. HEPTODIN [Suspect]
     Active Substance: LAMIVUDINE
     Indication: CHRONIC HEPATITIS B
     Dosage: UNK
     Route: 048
     Dates: start: 200303, end: 20170418
  2. VIREAD [Suspect]
     Active Substance: TENOFOVIR DISOPROXIL FUMARATE
     Indication: CHRONIC HEPATITIS B
     Dosage: 300 MG, QD
     Route: 048
     Dates: start: 20170418
  3. HEPSERA [Suspect]
     Active Substance: ADEFOVIR DIPIVOXIL
     Indication: CHRONIC HEPATITIS B
     Dosage: UNK
     Route: 048
     Dates: start: 2008, end: 20170418

REACTIONS (6)
  - Hospitalisation [Recovered/Resolved]
  - Drug resistance [Unknown]
  - Back pain [Recovering/Resolving]
  - Musculoskeletal discomfort [Recovering/Resolving]
  - Poor quality sleep [Recovering/Resolving]
  - Product complaint [Unknown]

NARRATIVE: CASE EVENT DATE: 20170418
